FAERS Safety Report 20291521 (Version 1)
Quarter: 2022Q1

REPORT INFORMATION
  Report Type: Spontaneous
  Country: US (occurrence: US)
  Receive Date: 20220104
  Receipt Date: 20220104
  Transmission Date: 20220424
  Serious: Yes (Other)
  Sender: FDA-Public Use
  Company Number: US-NOVARTISPH-NVSC2021US299468

PATIENT
  Age: 17 Year
  Sex: Male

DRUGS (9)
  1. TREPROSTINIL [Suspect]
     Active Substance: TREPROSTINIL
     Indication: Malignant atrophic papulosis
     Dosage: 0.25 MG, BID
     Route: 048
  2. TREPROSTINIL [Suspect]
     Active Substance: TREPROSTINIL
     Dosage: 22.5 NG/KG/MIN
     Route: 042
  3. CYCLOPHOSPHAMIDE [Suspect]
     Active Substance: CYCLOPHOSPHAMIDE
     Indication: Malignant atrophic papulosis
     Dosage: 750 MG/M2
     Route: 065
  4. PENTOXIFYLLINE [Suspect]
     Active Substance: PENTOXIFYLLINE
     Indication: Malignant atrophic papulosis
     Dosage: 400 MG, TID
     Route: 065
  5. ASPIRIN [Suspect]
     Active Substance: ASPIRIN
     Indication: Malignant atrophic papulosis
     Route: 065
  6. DIPYRIDAMOLE [Suspect]
     Active Substance: DIPYRIDAMOLE
     Indication: Malignant atrophic papulosis
     Dosage: 200 MG
     Route: 065
  7. ECULIZUMAB [Suspect]
     Active Substance: ECULIZUMAB
     Indication: Malignant atrophic papulosis
     Dosage: 1200 MG, Q2W
     Route: 042
  8. TOCILIZUMAB [Suspect]
     Active Substance: TOCILIZUMAB
     Indication: Malignant atrophic papulosis
     Dosage: 8 MG/KG, Q4W
     Route: 042
  9. PREDNISONE [Suspect]
     Active Substance: PREDNISONE
     Indication: Malignant atrophic papulosis
     Dosage: 50 MG
     Route: 065

REACTIONS (4)
  - Encephalopathy [Unknown]
  - Motor dysfunction [Unknown]
  - Product use issue [Unknown]
  - Product use in unapproved indication [Unknown]
